FAERS Safety Report 4386006-X (Version None)
Quarter: 2004Q2

REPORT INFORMATION
  Report Type: 
  Country: None (occurrence: None)
  Receive Date: 20040628
  Receipt Date: 20030130
  Transmission Date: 20050107
  Serious: Yes (Hospitalization, Disabling, Other)
  Sender: FDA-Public Use
  Company Number: US-MERCK-0302USA00118

PATIENT
  Age: 69 Year
  Sex: Female
  Weight: 97 kg

DRUGS (20)
  1. TYLENOL [Concomitant]
     Route: 065
  2. CALCIUM (UNSPECIFIED) [Concomitant]
     Indication: BONE DISORDER
     Route: 065
  3. PLAVIX [Concomitant]
     Route: 065
  4. CARDIZEM [Concomitant]
     Indication: CARDIAC DISORDER
     Route: 065
     Dates: end: 20010201
  5. PROZAC [Concomitant]
     Indication: DEPRESSION
     Route: 065
  6. LASIX [Suspect]
     Route: 065
     Dates: start: 20010201
  7. GLUCOTROL [Concomitant]
     Route: 065
  8. MOTRIN [Concomitant]
     Route: 065
  9. PRINIVIL [Concomitant]
     Route: 065
     Dates: start: 19980101
  10. ZESTRIL [Suspect]
     Route: 065
     Dates: start: 19980101, end: 20010712
  11. ZESTRIL [Suspect]
     Route: 065
     Dates: start: 20010713, end: 20020822
  12. NAPROXEN [Concomitant]
     Route: 065
  13. NITRO [Concomitant]
     Indication: CARDIAC DISORDER
     Route: 065
  14. ZANTAC [Concomitant]
     Route: 065
     Dates: end: 20010124
  15. VIOXX [Suspect]
     Indication: ARTHRITIS
     Route: 048
     Dates: start: 20000713, end: 20010907
  16. VIOXX [Suspect]
     Route: 048
     Dates: start: 20010908, end: 20010901
  17. MIACALCIN [Concomitant]
     Route: 065
  18. ZOCOR [Concomitant]
     Route: 048
  19. SPIRONOLACTONE [Concomitant]
     Indication: CARDIAC DISORDER
     Route: 065
  20. TEMAZEPAM [Concomitant]
     Indication: SLEEP DISORDER THERAPY
     Route: 065

REACTIONS (24)
  - ANXIETY [None]
  - BLOOD GLUCOSE INCREASED [None]
  - CARDIAC FAILURE CONGESTIVE [None]
  - CEREBROVASCULAR ACCIDENT [None]
  - CORONARY ARTERY DISEASE [None]
  - GASTROINTESTINAL INFECTION [None]
  - HYPERPARATHYROIDISM SECONDARY [None]
  - INJURY [None]
  - INSOMNIA [None]
  - ISCHAEMIC CARDIOMYOPATHY [None]
  - MENIERE'S DISEASE [None]
  - MITRAL VALVE INCOMPETENCE [None]
  - MYALGIA [None]
  - NERVE COMPRESSION [None]
  - OSTEOPOROSIS [None]
  - PHARYNGITIS [None]
  - RENAL FAILURE ACUTE [None]
  - RENAL FAILURE CHRONIC [None]
  - SEASONAL ALLERGY [None]
  - SILENT MYOCARDIAL INFARCTION [None]
  - SINUSITIS [None]
  - SKIN ULCER [None]
  - TRICUSPID VALVE INCOMPETENCE [None]
  - VENTRICULAR DYSFUNCTION [None]
